FAERS Safety Report 22231018 (Version 3)
Quarter: 2023Q2

REPORT INFORMATION
  Report Type: Spontaneous
  Country: BR (occurrence: BR)
  Receive Date: 20230420
  Receipt Date: 20230505
  Transmission Date: 20230722
  Serious: Yes (Other)
  Sender: FDA-Public Use
  Company Number: BR-CELLTRION INC.-2023BR008138

PATIENT

DRUGS (2)
  1. INFLIXIMAB [Suspect]
     Active Substance: INFLIXIMAB
     Indication: Ankylosing spondylitis
     Dosage: 3.5 AMPOULES EVERY 8 WEEKS
     Route: 042
     Dates: start: 20220921
  2. TRAMADOL [Concomitant]
     Active Substance: TRAMADOL
     Indication: Pain
     Dosage: 2 PILLS PER DAY
     Route: 048
     Dates: start: 202212

REACTIONS (10)
  - Erysipelas [Unknown]
  - Oropharyngeal discomfort [Unknown]
  - Arthralgia [Unknown]
  - Back pain [Unknown]
  - Fungal infection [Unknown]
  - Influenza [Unknown]
  - Infusion related hypersensitivity reaction [Unknown]
  - Weight decreased [Unknown]
  - Pruritus [Unknown]
  - Intentional dose omission [Unknown]
